FAERS Safety Report 10136710 (Version 1)
Quarter: 2014Q2

REPORT INFORMATION
  Report Type: Spontaneous
  Country: NO (occurrence: None)
  Receive Date: 20140425
  Receipt Date: 20140425
  Transmission Date: 20141212
  Serious: Yes (Hospitalization)
  Sender: FDA-Public Use
  Company Number: FK201401396

PATIENT
  Age: 64 Year
  Sex: Female

DRUGS (2)
  1. EPIRUBICIN [Suspect]
     Indication: BREAST CANCER
     Route: 042
     Dates: start: 20130311, end: 20130409
  2. NEULASTA (PEGFILGRASTIM) (PEGFILGRASTIM) [Concomitant]

REACTIONS (4)
  - Pneumocystis jirovecii infection [None]
  - Pneumonitis [None]
  - Lymphopenia [None]
  - Neutropenia [None]
